FAERS Safety Report 15464917 (Version 1)
Quarter: 2018Q4

REPORT INFORMATION
  Report Type: Spontaneous
  Country: CA (occurrence: CA)
  Receive Date: 20181004
  Receipt Date: 20181004
  Transmission Date: 20190204
  Serious: Yes (Disabling)
  Sender: FDA-Public Use
  Company Number: CA-CIPHER-2018-CA-001447

PATIENT
  Age: 87 Year
  Sex: Female

DRUGS (1)
  1. TRAMADOL HYDROCHLORIDE. [Suspect]
     Active Substance: TRAMADOL HYDROCHLORIDE
     Indication: ROTATOR CUFF SYNDROME
     Dosage: 50.0 MILLIGRAM 1 EVERY DAY
     Route: 048

REACTIONS (6)
  - Nausea [Recovered/Resolved with Sequelae]
  - Vitreous detachment [Recovered/Resolved with Sequelae]
  - Vomiting [Recovered/Resolved with Sequelae]
  - Vitreous floaters [Recovered/Resolved with Sequelae]
  - Balance disorder [Recovered/Resolved with Sequelae]
  - Hallucination, visual [Recovered/Resolved with Sequelae]
